FAERS Safety Report 17523616 (Version 1)
Quarter: 2020Q1

REPORT INFORMATION
  Report Type: Spontaneous
  Country: JP (occurrence: JP)
  Receive Date: 20200311
  Receipt Date: 20200311
  Transmission Date: 20200409
  Serious: Yes (Other)
  Sender: FDA-Public Use
  Company Number: JP-SUN PHARMACEUTICAL INDUSTRIES LTD-2020RR-240057

PATIENT
  Sex: Female
  Weight: 39 kg

DRUGS (3)
  1. LETROZOLE. [Suspect]
     Active Substance: LETROZOLE
     Indication: BREAST CANCER
     Dosage: 2.5 MILLIGRAM, DAILY
     Route: 065
  2. DENOSUMAB [Concomitant]
     Active Substance: DENOSUMAB
     Indication: PROPHYLAXIS
     Dosage: 120 MG EVERY MONTH FOR THE FIRST 6 MONTHS
     Route: 058
  3. DENOSUMAB [Concomitant]
     Active Substance: DENOSUMAB
     Dosage: 120 MG EVERY 3 MONTHS FOR THE NEXT 4.5 YEARS) UNTIL 6 MONTHS BEFORE HER HOSPITALIZATION
     Route: 058

REACTIONS (5)
  - Disease progression [Unknown]
  - Decreased appetite [Unknown]
  - Arthralgia [Unknown]
  - Hypercalcaemia [Recovering/Resolving]
  - Thirst [Unknown]
